FAERS Safety Report 20094093 (Version 6)
Quarter: 2022Q1

REPORT INFORMATION
  Report Type: Spontaneous
  Country: JP (occurrence: JP)
  Receive Date: 20211122
  Receipt Date: 20220121
  Transmission Date: 20220424
  Serious: Yes (Death)
  Sender: FDA-Public Use
  Company Number: JP-NOVARTISPH-NVSJ2021JP018986

PATIENT
  Age: 86 Year
  Sex: Male
  Weight: 47.7 kg

DRUGS (9)
  1. ENTRESTO [Suspect]
     Active Substance: SACUBITRIL\VALSARTAN
     Indication: Cardiac failure chronic
     Dosage: 200 MG, BID
     Route: 048
     Dates: start: 20210616, end: 20211107
  2. RIVASTIGMINE [Suspect]
     Active Substance: RIVASTIGMINE
     Indication: Dementia Alzheimer^s type
     Dosage: 9 MG
     Route: 062
     Dates: start: 20210603
  3. SODIUM FERROUS CITRATE [Suspect]
     Active Substance: SODIUM FERROUS CITRATE
     Indication: Nephrogenic anaemia
     Dosage: 50 MG, QD
     Route: 048
     Dates: start: 20210603
  4. LASIX [Suspect]
     Active Substance: FUROSEMIDE
     Indication: Cardiac failure
     Dosage: 10 MG, QD
     Route: 048
     Dates: start: 20210603
  5. CILOSTAZOL [Suspect]
     Active Substance: CILOSTAZOL
     Indication: Peripheral arterial occlusive disease
     Dosage: 50 MG, BID
     Route: 048
     Dates: start: 20210603
  6. MIYA-BM [Suspect]
     Active Substance: CLOSTRIDIUM BUTYRICUM SPORES STRAIN M-55
     Indication: Diarrhoea
     Dosage: 2 DOSAGE FORM, TID
     Route: 048
     Dates: start: 20210603
  7. LANSOPRAZOLE [Suspect]
     Active Substance: LANSOPRAZOLE
     Indication: Gastrooesophageal reflux disease
     Dosage: 15 MG, QD
     Route: 048
     Dates: start: 20210603
  8. AMLODIPINE BESYLATE [Suspect]
     Active Substance: AMLODIPINE BESYLATE
     Indication: Hypertension
     Dosage: 2.5 MG, QD
     Route: 048
     Dates: start: 20210603
  9. DAPRODUSTAT [Suspect]
     Active Substance: DAPRODUSTAT
     Indication: Nephrogenic anaemia
     Dosage: 2 MG, QD
     Route: 048
     Dates: start: 20210727

REACTIONS (7)
  - Pneumonia [Fatal]
  - Pyrexia [Fatal]
  - Sputum retention [Fatal]
  - Dehydration [Fatal]
  - Accidental exposure to product [Fatal]
  - Hypotension [Unknown]
  - Dizziness postural [Unknown]

NARRATIVE: CASE EVENT DATE: 20211026
